FAERS Safety Report 7826116-5 (Version None)
Quarter: 2011Q4

REPORT INFORMATION
  Report Type: 
  Country: None (occurrence: None)
  Receive Date: 20111019
  Receipt Date: 20111010
  Transmission Date: 20120403
  Serious: No
  Sender: FDA-Public Use
  Company Number: US-ASTRAZENECA-2011SE55385

PATIENT
  Age: 68 Year
  Sex: Female

DRUGS (22)
  1. AMLODIPINE BESYLATE [Concomitant]
  2. FISH OIL [Concomitant]
  3. IBUPROFEN [Concomitant]
  4. PILOCARPINE [Concomitant]
  5. VIAGRA [Concomitant]
  6. C [Concomitant]
  7. METROGEL [Concomitant]
     Dosage: APPLY TO FACE EVERY NIGHT
  8. CALCIUM W/D [Concomitant]
  9. REFRESH OPTIVE/CELLUVISC [Concomitant]
     Dosage: AS NEEDED
  10. CRESTOR [Suspect]
     Indication: HYPERCHOLESTEROLAEMIA
     Route: 048
  11. NITRO-BID [Concomitant]
     Indication: MUSCULOSKELETAL PAIN
     Dosage: AS NEEDED
  12. ESTRADIOL [Concomitant]
  13. MEDROXYPROGESTERONE [Concomitant]
  14. CRESTOR [Suspect]
     Route: 048
  15. MULTI-VITAMIN [Concomitant]
  16. BAYER [Concomitant]
  17. LISINOPRIL [Concomitant]
  18. VICADIN [Concomitant]
     Dosage: 5/325 MG AS NEEDED
  19. CRESTOR [Suspect]
     Route: 048
  20. PANTOPRAZOLE [Concomitant]
  21. RESTASIS [Concomitant]
     Dosage: 1 DROP BID
  22. E [Concomitant]

REACTIONS (4)
  - CREST SYNDROME [None]
  - RAYNAUD'S PHENOMENON [None]
  - SJOGREN'S SYNDROME [None]
  - WRONG TECHNIQUE IN DRUG USAGE PROCESS [None]
